FAERS Safety Report 8525745-3 (Version None)
Quarter: 2012Q3

REPORT INFORMATION
  Report Type: 
  Country: None (occurrence: None)
  Receive Date: 20120720
  Receipt Date: 20120709
  Transmission Date: 20120928
  Serious: Yes (Hospitalization, Other)
  Sender: FDA-Public Use
  Company Number: US-MSD-1109USA02409

PATIENT

DRUGS (2)
  1. FOSAMAX [Suspect]
     Indication: OSTEOPENIA
     Route: 048
  2. FOSAMAX [Suspect]
     Indication: OSTEOPOROSIS

REACTIONS (19)
  - ARTHRITIS [None]
  - CEREBRAL ATROPHY [None]
  - DEVICE FAILURE [None]
  - STITCH ABSCESS [None]
  - INCREASED TENDENCY TO BRUISE [None]
  - MASTOID DISORDER [None]
  - DEMENTIA ALZHEIMER'S TYPE [None]
  - ARTERIOSCLEROSIS [None]
  - CEREBRAL ISCHAEMIA [None]
  - CEREBROVASCULAR DISORDER [None]
  - LACUNAR INFARCTION [None]
  - TRANSIENT ISCHAEMIC ATTACK [None]
  - ARTERIAL DISORDER [None]
  - FEMUR FRACTURE [None]
  - ARTHROPATHY [None]
  - LOW TURNOVER OSTEOPATHY [None]
  - DEPRESSION [None]
  - FALL [None]
  - PAIN IN EXTREMITY [None]
